FAERS Safety Report 7770969-6 (Version None)
Quarter: 2011Q3

REPORT INFORMATION
  Report Type: 
  Country: None (occurrence: None)
  Receive Date: 20110922
  Receipt Date: 20110218
  Transmission Date: 20111222
  Serious: No
  Sender: FDA-Public Use
  Company Number: US-ASTRAZENECA-2011SE09772

PATIENT
  Age: 23 Year
  Sex: Female

DRUGS (2)
  1. SEROQUEL XR [Suspect]
     Indication: BIPOLAR DISORDER
     Route: 048
     Dates: start: 20080101
  2. CLONAZEPAM [Concomitant]
     Indication: BIPOLAR DISORDER

REACTIONS (2)
  - HYPOTHYROIDISM [None]
  - WRONG TECHNIQUE IN DRUG USAGE PROCESS [None]
